FAERS Safety Report 18149637 (Version 1)
Quarter: 2020Q3

REPORT INFORMATION
  Report Type: Spontaneous
  Country: US (occurrence: US)
  Receive Date: 20200814
  Receipt Date: 20200814
  Transmission Date: 20201103
  Serious: Yes (Other)
  Sender: FDA-Public Use
  Company Number: US-ASTRAZENECA-2020SF01476

PATIENT
  Sex: Male
  Weight: 68.9 kg

DRUGS (1)
  1. BRILINTA [Suspect]
     Active Substance: TICAGRELOR
     Route: 048
     Dates: start: 20200805, end: 20200806

REACTIONS (2)
  - Cerebral disorder [Unknown]
  - Rectal haemorrhage [Unknown]
